FAERS Safety Report 5553347-X (Version None)
Quarter: 2007Q4

REPORT INFORMATION
  Report Type: 
  Country: None (occurrence: None)
  Receive Date: 20071212
  Receipt Date: 20071212
  Transmission Date: 20080405
  Serious: Yes (Other)
  Sender: FDA-Public Use
  Company Number: None

PATIENT
  Age: 13 Year
  Sex: Male
  Weight: 36.36 kg

DRUGS (4)
  1. VIVAGLOBIN [Suspect]
     Indication: HYPOGLOBULINAEMIA
     Dosage: 11.2G  Q WEEK SQ  (80 MINUTE INFUSION)
     Route: 058
     Dates: start: 20071206, end: 20071206
  2. VIVAGLOBIN [Suspect]
     Indication: IMMUNODEFICIENCY COMMON VARIABLE
     Dosage: 11.2G  Q WEEK SQ  (80 MINUTE INFUSION)
     Route: 058
     Dates: start: 20071206, end: 20071206
  3. VIVAGLOBIN [Suspect]
  4. NUTROPIN [Concomitant]

REACTIONS (5)
  - CHILLS [None]
  - HEADACHE [None]
  - NAUSEA [None]
  - NECK PAIN [None]
  - PYREXIA [None]
